FAERS Safety Report 23191584 (Version 1)
Quarter: 2023Q4

REPORT INFORMATION
  Report Type: Spontaneous
  Country: KW (occurrence: None)
  Receive Date: 20231115
  Receipt Date: 20231115
  Transmission Date: 20240110
  Serious: Yes (Hospitalization, Other)
  Sender: FDA-Public Use
  Company Number: None

PATIENT
  Age: 26 Year
  Sex: Female
  Weight: 58 kg

DRUGS (1)
  1. BRINTELLIX [Suspect]
     Active Substance: VORTIOXETINE HYDROBROMIDE
     Indication: Depression
     Dosage: OTHER QUANTITY : 28 TABLET(S);?FREQUENCY : AT BEDTIME;?
     Route: 048
     Dates: start: 20231106, end: 20231114

REACTIONS (6)
  - Nausea [None]
  - Vomiting projectile [None]
  - Tremor [None]
  - Product communication issue [None]
  - Contusion [None]
  - Product complaint [None]

NARRATIVE: CASE EVENT DATE: 20231114
